FAERS Safety Report 13824666 (Version 2)
Quarter: 2018Q3

REPORT INFORMATION
  Report Type: Report from Study
  Country: FR (occurrence: FR)
  Receive Date: 20170802
  Receipt Date: 20180703
  Transmission Date: 20181010
  Serious: Yes (Other)
  Sender: FDA-Public Use
  Company Number: FR-ACTELION-A-CH2016-140532

PATIENT
  Age: 64 Year
  Sex: Female
  Weight: 54 kg

DRUGS (6)
  1. RALOXIFENE. [Concomitant]
     Active Substance: RALOXIFENE
     Indication: OSTEOPOROSIS
     Dosage: 60 MG, OD
     Dates: start: 20150901
  2. UVEDOSE [Concomitant]
     Active Substance: CHOLECALCIFEROL
     Indication: OSTEOPOROSIS
     Dosage: 100000 IU, EVERY TWO MONTH
     Dates: start: 20150901
  3. LEDAGA [Suspect]
     Active Substance: MECHLORETHAMINE HYDROCHLORIDE
     Indication: MYCOSIS FUNGOIDES STAGE I
     Dosage: UNK, QD
     Route: 061
     Dates: start: 20160802, end: 20170503
  4. VALCHLOR [Suspect]
     Active Substance: MECHLORETHAMINE
     Indication: MYCOSIS FUNGOIDES STAGE I
     Dosage: UNK, OD
     Route: 061
     Dates: start: 20160506, end: 20160611
  5. LEDAGA [Suspect]
     Active Substance: MECHLORETHAMINE HYDROCHLORIDE
     Dosage: UNK, QD
     Route: 061
  6. VALCHLOR [Suspect]
     Active Substance: MECHLORETHAMINE
     Dosage: UNK, OD
     Route: 061
     Dates: start: 20160612, end: 20160719

REACTIONS (7)
  - Pruritus [Recovered/Resolved]
  - Inflammation [Recovered/Resolved]
  - Skin hyperpigmentation [Recovered/Resolved]
  - Asthenia [Recovered/Resolved]
  - Drug effect incomplete [Unknown]
  - Erythema multiforme [Recovered/Resolved]
  - Burning sensation [Recovered/Resolved]

NARRATIVE: CASE EVENT DATE: 20160506
